FAERS Safety Report 17483254 (Version 2)
Quarter: 2020Q1

REPORT INFORMATION
  Report Type: Spontaneous
  Country: FI (occurrence: FI)
  Receive Date: 20200302
  Receipt Date: 20200318
  Transmission Date: 20200409
  Serious: Yes (Hospitalization)
  Sender: FDA-Public Use
  Company Number: FI-TEVA-2020-FI-1192079

PATIENT
  Age: 75 Year
  Sex: Male

DRUGS (1)
  1. TRAMADOL. [Suspect]
     Active Substance: TRAMADOL
     Dosage: 300 MILLIGRAM DAILY; 150 MG 2 TIMES A DAY

REACTIONS (3)
  - Disorientation [Unknown]
  - Fall [Unknown]
  - Confusional state [Recovering/Resolving]
